FAERS Safety Report 7923710-8 (Version None)
Quarter: 2011Q4

REPORT INFORMATION
  Report Type: 
  Country: None (occurrence: None)
  Receive Date: 20111117
  Receipt Date: 20100622
  Transmission Date: 20120403
  Serious: Yes (Hospitalization)
  Sender: FDA-Public Use
  Company Number: PHHY2010TW40664

PATIENT
  Sex: Female

DRUGS (1)
  1. GLEEVEC [Suspect]
     Indication: CHRONIC MYELOID LEUKAEMIA
     Dosage: 300 MG, UNK
     Route: 048

REACTIONS (4)
  - MUSCULAR WEAKNESS [None]
  - GINGIVAL DISORDER [None]
  - HAEMORRHAGE INTRACRANIAL [None]
  - ROAD TRAFFIC ACCIDENT [None]
